FAERS Safety Report 11360438 (Version 1)
Quarter: 2015Q3

REPORT INFORMATION
  Report Type: Report from Study
  Country: US (occurrence: US)
  Receive Date: 20150810
  Receipt Date: 20150810
  Transmission Date: 20151125
  Serious: No
  Sender: FDA-Public Use
  Company Number: PHEH2015US009860

PATIENT
  Age: 31 Year
  Sex: Female

DRUGS (4)
  1. EXTAVIA [Suspect]
     Active Substance: INTERFERON BETA-1B
     Dosage: (WEEK 3 TO 4): 0.125 MG (0.5 ML), QOD
     Route: 058
     Dates: start: 20150512
  2. EXTAVIA [Suspect]
     Active Substance: INTERFERON BETA-1B
     Dosage: (WEEK 5 TO 6): 0.1875 MG (0.75 ML)
     Route: 058
     Dates: start: 20150512
  3. EXTAVIA [Suspect]
     Active Substance: INTERFERON BETA-1B
     Indication: MULTIPLE SCLEROSIS
     Dosage: (WEEK 1 TO 2): 0.0625 MG (0.25 ML), QOD
     Route: 058
     Dates: start: 20150512
  4. EXTAVIA [Suspect]
     Active Substance: INTERFERON BETA-1B
     Dosage: WEEK 7+: 0.25 MG (1 ML), QOD
     Route: 058
     Dates: start: 20150512

REACTIONS (1)
  - Injection site pain [Recovered/Resolved]

NARRATIVE: CASE EVENT DATE: 20150518
